FAERS Safety Report 6921136-7 (Version None)
Quarter: 2010Q3

REPORT INFORMATION
  Report Type: 
  Country: None (occurrence: None)
  Receive Date: 20100812
  Receipt Date: 20100804
  Transmission Date: 20110219
  Serious: Yes (Hospitalization)
  Sender: FDA-Public Use
  Company Number: BE-JNJCH-2007072960

PATIENT
  Sex: Female

DRUGS (4)
  1. VIRLIX [Suspect]
     Indication: NASAL INFLAMMATION
     Dosage: DAILY DOSE:10MG
     Route: 048
     Dates: start: 20070715, end: 20070715
  2. VIRLIX [Suspect]
     Indication: PHARYNGITIS
  3. EURESPAL [Suspect]
     Indication: NASAL INFLAMMATION
     Dosage: DAILY DOSE:240MG
     Route: 048
     Dates: start: 20070715, end: 20070715
  4. EURESPAL [Suspect]
     Indication: PHARYNGITIS

REACTIONS (2)
  - BALANCE DISORDER [None]
  - VERTIGO [None]
